FAERS Safety Report 10468757 (Version 2)
Quarter: 2014Q3

REPORT INFORMATION
  Report Type: Spontaneous
  Country: NO (occurrence: NO)
  Receive Date: 20140923
  Receipt Date: 20140923
  Transmission Date: 20150326
  Serious: Yes (Death, Hospitalization, Other)
  Sender: FDA-Public Use
  Company Number: NO-AUROBINDO-AUR-APL-2013-09878

PATIENT
  Age: 57 Year
  Sex: Female

DRUGS (23)
  1. SIMVASTATIN 40MG [Suspect]
     Active Substance: SIMVASTATIN
     Dosage: 40MG,ONCE A DAY
     Route: 065
     Dates: start: 201210, end: 20131130
  2. SIMVASTATIN 40MG [Suspect]
     Active Substance: SIMVASTATIN
     Dosage: UNK
     Route: 065
     Dates: end: 201402
  3. CETIRIZINE [Concomitant]
     Active Substance: CETIRIZINE HYDROCHLORIDE
     Indication: DIABETES MELLITUS
     Dosage: 10 MG,AS NECESSARY,
     Route: 065
  4. ISOPHANE INSULIN [Concomitant]
     Active Substance: INSULIN NOS
     Indication: HYPOTHYROIDISM
  5. METFORMIN [Concomitant]
     Active Substance: METFORMIN HYDROCHLORIDE
     Indication: DIABETES MELLITUS
     Dosage: 500 MG,ONCE A DAY,
     Route: 065
  6. VALLERGAN [Concomitant]
     Active Substance: TRIMEPRAZINE
     Indication: DIABETES MELLITUS
     Dosage: UNK
     Route: 065
  7. ISOPHANE INSULIN [Concomitant]
     Active Substance: INSULIN NOS
     Indication: HYPERSENSITIVITY
  8. LEVAXIN [Concomitant]
     Active Substance: LEVOTHYROXINE SODIUM
     Indication: HYPERSENSITIVITY
  9. ISOPHANE INSULIN [Concomitant]
     Active Substance: INSULIN NOS
     Indication: DIABETES MELLITUS
     Dosage: UNK
     Route: 042
  10. METFORMIN [Concomitant]
     Active Substance: METFORMIN HYDROCHLORIDE
     Indication: HYPERSENSITIVITY
  11. VALLERGAN [Concomitant]
     Active Substance: TRIMEPRAZINE
     Indication: HYPERSENSITIVITY
  12. METFORMIN [Concomitant]
     Active Substance: METFORMIN HYDROCHLORIDE
     Indication: HYPOTHYROIDISM
  13. SIMVASTATIN 40MG [Suspect]
     Active Substance: SIMVASTATIN
     Indication: DIABETES MELLITUS
     Dosage: 20MG,ONCE A DAY
     Route: 065
     Dates: start: 201105, end: 201210
  14. ISOPHANE INSULIN [Concomitant]
     Active Substance: INSULIN NOS
     Indication: HYPOTHYROIDISM
  15. SIMVASTATIN 40MG [Suspect]
     Active Substance: SIMVASTATIN
     Indication: HYPERCHOLESTEROLAEMIA
     Dosage: 40 MG,ONCE A DAY,
     Route: 048
     Dates: start: 200712, end: 201105
  16. PANTOPRAZOLE [Concomitant]
     Active Substance: PANTOPRAZOLE SODIUM
     Indication: DIABETES MELLITUS
     Dosage: UNK
     Route: 065
  17. VALLERGAN [Concomitant]
     Active Substance: TRIMEPRAZINE
     Indication: HYPOTHYROIDISM
  18. LEVAXIN [Concomitant]
     Active Substance: LEVOTHYROXINE SODIUM
     Indication: HYPOTHYROIDISM
  19. CETIRIZINE [Concomitant]
     Active Substance: CETIRIZINE HYDROCHLORIDE
     Indication: HYPOTHYROIDISM
  20. CETIRIZINE [Concomitant]
     Active Substance: CETIRIZINE HYDROCHLORIDE
     Indication: HYPERSENSITIVITY
  21. LEVAXIN [Concomitant]
     Active Substance: LEVOTHYROXINE SODIUM
     Indication: DIABETES MELLITUS
     Dosage: 25 ?G,ONCE A DAY,
     Route: 065
  22. PANTOPRAZOLE [Concomitant]
     Active Substance: PANTOPRAZOLE SODIUM
     Indication: HYPOTHYROIDISM
  23. PANTOPRAZOLE [Concomitant]
     Active Substance: PANTOPRAZOLE SODIUM
     Indication: HYPERSENSITIVITY

REACTIONS (3)
  - Pleurisy [Recovered/Resolved]
  - Atrial fibrillation [Unknown]
  - Pericarditis [Recovered/Resolved]

NARRATIVE: CASE EVENT DATE: 201105
